FAERS Safety Report 9803971 (Version 4)
Quarter: 2014Q2

REPORT INFORMATION
  Report Type: Spontaneous
  Country: US (occurrence: None)
  Receive Date: 20140103
  Receipt Date: 20140409
  Transmission Date: 20141212
  Serious: Yes (Hospitalization, Other)
  Sender: FDA-Public Use
  Company Number: 2013-001581

PATIENT
  Age: 60 Year
  Sex: Female
  Weight: 68 kg

DRUGS (14)
  1. ACTONEL [Suspect]
     Indication: OSTEOPOROSIS
     Dosage: 35MG ONCE WEEKLY, ORAL
     Route: 048
     Dates: start: 2003, end: 200903
  2. ACTONEL [Suspect]
     Indication: OSTEOPENIA
     Dosage: 35MG ONCE WEEKLY, ORAL
     Route: 048
     Dates: start: 2003, end: 200903
  3. ACTONEL [Suspect]
     Indication: OSTEOPOROSIS PROPHYLAXIS
     Dosage: 35MG ONCE WEEKLY, ORAL
     Route: 048
     Dates: start: 2003, end: 200903
  4. BONIVA [Suspect]
     Dates: start: 200902, end: 200903
  5. FOSAMAX [Suspect]
     Indication: OSTEOPOROSIS
     Route: 048
     Dates: start: 200903, end: 201102
  6. FOSAMAX [Suspect]
     Indication: OSTEOPENIA
     Route: 048
     Dates: start: 200903, end: 201102
  7. FOSAMAX [Suspect]
     Indication: OSTEOPOROSIS PROPHYLAXIS
     Route: 048
     Dates: start: 200903, end: 201102
  8. LOVASTATIN (LOVASTATIN) [Concomitant]
  9. BACITRACIN [Concomitant]
  10. MYTREX [Concomitant]
  11. OXISTAT [Concomitant]
  12. MULTIVITAMIN [Concomitant]
  13. CALCIUM + VITAMIN D (CALCIUM CARBONATE, COLECALCIFEROL) [Concomitant]
  14. ALENDRONATE (ALENDRONATE SODIUM) [Suspect]
     Route: 048
     Dates: start: 20090307, end: 20110112

REACTIONS (7)
  - Atypical femur fracture [None]
  - Musculoskeletal discomfort [None]
  - Low turnover osteopathy [None]
  - Stress fracture [None]
  - Arthralgia [None]
  - Muscular weakness [None]
  - Trendelenburg^s symptom [None]
